FAERS Safety Report 6335997-6 (Version None)
Quarter: 2009Q3

REPORT INFORMATION
  Report Type: 
  Country: None (occurrence: None)
  Receive Date: 20090901
  Receipt Date: 20090825
  Transmission Date: 20100115
  Serious: Yes (Other)
  Sender: FDA-Public Use
  Company Number: US-BAYER-200928557NA

PATIENT
  Age: 36 Year
  Sex: Female
  Weight: 72 kg

DRUGS (6)
  1. MIRENA [Suspect]
     Indication: CONTRACEPTION
     Route: 015
     Dates: start: 20081107, end: 20090609
  2. BENICAR [Concomitant]
     Dosage: 4O MG/DAY
  3. BYSTOLIC [Concomitant]
     Indication: HYPERTENSION
     Dosage: 10 MG/DAY
  4. WELLBUTRIN XL [Concomitant]
     Indication: DEPRESSION
     Dosage: 150 MG/DAY
  5. LISINOPRIL [Concomitant]
     Indication: HYPERTENSION
     Dosage: 40 MG/DAY
  6. PLAVIX [Concomitant]
     Indication: ATRIAL SEPTAL DEFECT
     Dosage: 75 MG/DAY

REACTIONS (4)
  - BLOOD OESTROGEN INCREASED [None]
  - OEDEMA [None]
  - OVARIAN CYST [None]
  - WEIGHT INCREASED [None]
